FAERS Safety Report 9893246 (Version 1)
Quarter: 2014Q1

REPORT INFORMATION
  Report Type: Other
  Country: GB (occurrence: GB)
  Receive Date: 20140213
  Receipt Date: 20140213
  Transmission Date: 20141002
  Serious: Yes (Other)
  Sender: FDA-Public Use
  Company Number: GB-SUN PHARMACEUTICAL INDUSTRIES LTD-2014SUN00290

PATIENT
  Age: 23 Year
  Sex: Female
  Weight: 104.1 kg

DRUGS (5)
  1. VENLAFAXINE HYDROCHLORIDE 37.5MG TABLET [Suspect]
     Indication: DEPRESSION
     Dosage: 75  MG
     Route: 048
  2. VENLAFAXINE HYDROCHLORIDE 37.5MG TABLET [Suspect]
     Dosage: 37.75 MG, ONCE PER DAY
     Route: 048
  3. VENLAFAXINE HYDROCHLORIDE 37.5MG TABLET [Suspect]
     Dosage: 37.75 MG, ONCE PER TWO DAYS
     Route: 048
  4. VENLAFAXINE HYDROCHLORIDE 37.5MG TABLET [Suspect]
     Dosage: 17.75 MG, ONCE PER TWO DAYS
     Route: 048
     Dates: end: 20140122
  5. VENLAFAXINE HYDROCHLORIDE 37.5MG TABLET [Suspect]
     Dosage: UNK

REACTIONS (7)
  - Muscle twitching [Not Recovered/Not Resolved]
  - Muscle tightness [Not Recovered/Not Resolved]
  - Headache [Not Recovered/Not Resolved]
  - Dizziness [Not Recovered/Not Resolved]
  - Hyperhidrosis [Not Recovered/Not Resolved]
  - Paraesthesia [Not Recovered/Not Resolved]
  - Withdrawal syndrome [Not Recovered/Not Resolved]
